FAERS Safety Report 9619762 (Version 1)
Quarter: 2013Q4

REPORT INFORMATION
  Report Type: Spontaneous
  Country: FR (occurrence: FR)
  Receive Date: 20131014
  Receipt Date: 20131014
  Transmission Date: 20140711
  Serious: Yes (Hospitalization)
  Sender: FDA-Public Use
  Company Number: FR-GLAXOSMITHKLINE-B0921395A

PATIENT
  Age: 47 Year
  Sex: Female

DRUGS (7)
  1. FLOLAN [Suspect]
     Indication: PULMONARY ARTERIAL HYPERTENSION
     Dosage: 3.2MLH PER DAY
     Route: 042
     Dates: start: 201303
  2. TRACLEER [Concomitant]
     Indication: PULMONARY ARTERIAL HYPERTENSION
     Dosage: 62.5MG TWICE PER DAY
     Route: 048
     Dates: start: 201303
  3. REVATIO [Concomitant]
     Indication: PULMONARY ARTERIAL HYPERTENSION
     Dosage: 20MG TWICE PER DAY
     Route: 048
     Dates: start: 201303
  4. TEGELINE [Concomitant]
     Indication: POLYNEUROPATHY CHRONIC
     Route: 042
     Dates: start: 20130816, end: 20130816
  5. LASILIX [Concomitant]
     Route: 048
  6. LEXOMIL [Concomitant]
     Route: 048
  7. DEROXAT [Concomitant]
     Route: 048

REACTIONS (3)
  - Thrombocytopenia [Not Recovered/Not Resolved]
  - Gingival bleeding [Unknown]
  - Ecchymosis [Unknown]
